FAERS Safety Report 11858964 (Version 2)
Quarter: 2016Q1

REPORT INFORMATION
  Report Type: Report from Study
  Country: FR (occurrence: FR)
  Receive Date: 20151222
  Receipt Date: 20160127
  Transmission Date: 20160526
  Serious: Yes (Death)
  Sender: FDA-Public Use
  Company Number: FR-ACTELION-A-CH2015-128728

PATIENT
  Age: 57 Year
  Sex: Female

DRUGS (7)
  1. INEXIUM [Concomitant]
     Active Substance: ESOMEPRAZOLE
     Dosage: 40 MG, QD
     Route: 048
     Dates: start: 2006
  2. LEVOTHYROX [Concomitant]
     Active Substance: LEVOTHYROXINE
     Dosage: 125 MG, QD
     Route: 048
     Dates: start: 2004
  3. DEPAMIDE [Concomitant]
     Active Substance: VALPROMIDE
     Dosage: 300 MG, BID
     Route: 048
     Dates: start: 2004
  4. ADALAT PA10 [Concomitant]
     Dosage: 10 MG, BID
     Route: 048
     Dates: start: 2006
  5. TRACLEER [Suspect]
     Active Substance: BOSENTAN
     Indication: SCLERODERMA ASSOCIATED DIGITAL ULCER
     Dosage: 62.5 MG, BID
     Route: 048
     Dates: start: 20101207, end: 201101
  6. TRACLEER [Suspect]
     Active Substance: BOSENTAN
     Dosage: 125 MG, BID
     Route: 048
     Dates: start: 2011
  7. METOJECT [Concomitant]
     Active Substance: METHOTREXATE SODIUM
     Dosage: 20 MG, UNK
     Route: 058
     Dates: start: 2008

REACTIONS (3)
  - Atrial flutter [Unknown]
  - Cardio-respiratory arrest [Fatal]
  - Clostridium difficile infection [Recovered/Resolved]

NARRATIVE: CASE EVENT DATE: 2013
